FAERS Safety Report 8259341-2 (Version None)
Quarter: 2012Q2

REPORT INFORMATION
  Report Type: 
  Country: None (occurrence: None)
  Receive Date: 20120404
  Receipt Date: 20120327
  Transmission Date: 20120825
  Serious: Yes (Hospitalization)
  Sender: FDA-Public Use
  Company Number: US-ALEXION-A201200546

PATIENT
  Sex: Female

DRUGS (8)
  1. HEMOPHILUS INFLUENZA VACCINE [Concomitant]
     Dosage: UNK
     Dates: start: 20120120, end: 20120120
  2. FAMVIR [Concomitant]
     Indication: PROPHYLAXIS
     Dosage: 250 MG, BID
     Route: 048
  3. FOLIC ACID [Concomitant]
     Dosage: UNK
  4. PNEUMOCOCCAL VACCINE [Concomitant]
     Dosage: UNK
     Dates: start: 20111222, end: 20111222
  5. SOLIRIS [Suspect]
     Indication: PAROXYSMAL NOCTURNAL HAEMOGLOBINURIA
     Dosage: 600 MG, QW
     Route: 042
     Dates: start: 20100929, end: 20100101
  6. SOLIRIS [Suspect]
     Dosage: 900 MG, Q2W
     Route: 042
     Dates: start: 20100101
  7. CYCLOSPORINE [Concomitant]
     Dosage: 200 MG, QD
  8. MAGNESIUM OXIDE [Concomitant]
     Dosage: 400 MG, QD

REACTIONS (9)
  - NAUSEA [None]
  - NON-CARDIOGENIC PULMONARY OEDEMA [None]
  - PLATELET COUNT DECREASED [None]
  - WHEEZING [None]
  - DYSPNOEA [None]
  - TRANSFUSION REACTION [None]
  - HYPOTENSION [None]
  - MUSCULOSKELETAL DISCOMFORT [None]
  - VOMITING [None]
